FAERS Safety Report 19389020 (Version 1)
Quarter: 2021Q2

REPORT INFORMATION
  Report Type: Spontaneous
  Country: US (occurrence: US)
  Receive Date: 20210607
  Receipt Date: 20210607
  Transmission Date: 20210717
  Serious: No
  Sender: FDA-Public Use
  Company Number: US-FDC LIMITED-2020RIS00369

PATIENT
  Sex: Female
  Weight: 65.31 kg

DRUGS (4)
  1. TIMOLOL MALEATE. [Suspect]
     Active Substance: TIMOLOL MALEATE
     Indication: GLAUCOMA
     Dosage: 1 DROP, 2X/DAY IN EACH EYE
     Route: 047
     Dates: start: 2011, end: 20200720
  2. LATANOPROST. [Concomitant]
     Active Substance: LATANOPROST
  3. SYNTHROID [Concomitant]
     Active Substance: LEVOTHYROXINE SODIUM
  4. TIMOLOL MALEATE. [Suspect]
     Active Substance: TIMOLOL MALEATE
     Dosage: 1 DROP, 2X/DAY IN EACH EYE
     Route: 047
     Dates: start: 20200721, end: 20200821

REACTIONS (6)
  - Ocular hyperaemia [Not Recovered/Not Resolved]
  - Exposure via skin contact [Recovered/Resolved]
  - Product delivery mechanism issue [Recovered/Resolved]
  - Product closure issue [Recovered/Resolved]
  - Product packaging difficult to open [Recovered/Resolved]
  - Eyelids pruritus [Not Recovered/Not Resolved]

NARRATIVE: CASE EVENT DATE: 2020
